FAERS Safety Report 23597797 (Version 1)
Quarter: 2024Q1

REPORT INFORMATION
  Report Type: Spontaneous
  Country: GR (occurrence: GR)
  Receive Date: 20240305
  Receipt Date: 20240305
  Transmission Date: 20240410
  Serious: Yes (Death)
  Sender: FDA-Public Use
  Company Number: GR-BAYER-2024A013751

PATIENT
  Age: 14 Year

DRUGS (1)
  1. VITRAKVI [Suspect]
     Active Substance: LAROTRECTINIB
     Dosage: UNK

REACTIONS (4)
  - Death [Fatal]
  - Nervous system disorder [None]
  - Dysphagia [None]
  - Wrong technique in product usage process [None]

NARRATIVE: CASE EVENT DATE: 20240201
